FAERS Safety Report 19907032 (Version 2)
Quarter: 2021Q4

REPORT INFORMATION
  Report Type: Spontaneous
  Country: JP (occurrence: JP)
  Receive Date: 20211001
  Receipt Date: 20211106
  Transmission Date: 20220303
  Serious: No
  Sender: FDA-Public Use
  Company Number: JP-ONO-2021JP023984

PATIENT
  Age: 38 Year
  Sex: Female

DRUGS (2)
  1. EMEND [Suspect]
     Active Substance: APREPITANT
     Indication: Prophylaxis of nausea and vomiting
     Dosage: UNK UNK, EVERYDAY
     Route: 048
  2. EMEND [Suspect]
     Active Substance: APREPITANT
     Dosage: 125 MG
     Route: 048
     Dates: start: 20210921

REACTIONS (2)
  - Muscle spasms [Recovered/Resolved]
  - Pain in extremity [Unknown]

NARRATIVE: CASE EVENT DATE: 20210921
